FAERS Safety Report 15008844 (Version 4)
Quarter: 2020Q1

REPORT INFORMATION
  Report Type: Report from Study
  Country: JP (occurrence: JP)
  Receive Date: 20180613
  Receipt Date: 20200214
  Transmission Date: 20200409
  Serious: Yes (Life-Threatening, Hospitalization, Other)
  Sender: FDA-Public Use
  Company Number: JP-BIOGEN-2018BI00594083

PATIENT
  Age: 3 Month
  Sex: Male
  Weight: 4.14 kg

DRUGS (25)
  1. SPINRAZA [Suspect]
     Active Substance: NUSINERSEN
     Route: 050
     Dates: start: 20190514, end: 20190514
  2. EMLA [Concomitant]
     Active Substance: LIDOCAINE\PRILOCAINE
     Dosage: SMALL QUANTITY
     Route: 050
     Dates: start: 20180417, end: 20180417
  3. ATARAX-P [Concomitant]
     Active Substance: HYDROXYZINE HYDROCHLORIDE
     Dates: start: 20190122, end: 20190122
  4. SPINRAZA [Suspect]
     Active Substance: NUSINERSEN
     Indication: SPINAL MUSCULAR ATROPHY
     Route: 050
     Dates: start: 20180320, end: 20180320
  5. SPINRAZA [Suspect]
     Active Substance: NUSINERSEN
     Route: 050
     Dates: start: 20180417, end: 20180417
  6. EMLA [Concomitant]
     Active Substance: LIDOCAINE\PRILOCAINE
     Dosage: SMALL QUANTITY
     Route: 050
     Dates: start: 20180522, end: 20180522
  7. ATARAX-P [Concomitant]
     Active Substance: HYDROXYZINE HYDROCHLORIDE
     Indication: ANAESTHESIA PROCEDURE
     Dates: start: 20180522, end: 20180522
  8. MIDAZOLAM HYDROCHLORIDE. [Concomitant]
     Active Substance: MIDAZOLAM HYDROCHLORIDE
     Dates: start: 20190122, end: 20190122
  9. SPINRAZA [Suspect]
     Active Substance: NUSINERSEN
     Route: 050
     Dates: start: 20180403, end: 20180403
  10. SPINRAZA [Suspect]
     Active Substance: NUSINERSEN
     Route: 050
     Dates: start: 20180522, end: 20180522
  11. EMLA [Concomitant]
     Active Substance: LIDOCAINE\PRILOCAINE
     Dosage: SMALL QUANTITY
     Route: 050
     Dates: start: 20180911, end: 20180911
  12. SOSEGON [Concomitant]
     Active Substance: PENTAZOCINE
     Dates: start: 20180911, end: 20180911
  13. MIDAZOLAM HYDROCHLORIDE. [Concomitant]
     Active Substance: MIDAZOLAM HYDROCHLORIDE
     Indication: ANAESTHESIA PROCEDURE
     Dates: start: 20180911, end: 20180911
  14. MIDAZOLAM HYDROCHLORIDE. [Concomitant]
     Active Substance: MIDAZOLAM HYDROCHLORIDE
     Dates: start: 20190514, end: 20190514
  15. SPINRAZA [Suspect]
     Active Substance: NUSINERSEN
     Route: 050
     Dates: start: 20180911, end: 20180911
  16. EMLA [Concomitant]
     Active Substance: LIDOCAINE\PRILOCAINE
     Dosage: SMALL QUANTITY
     Route: 050
     Dates: start: 20180403, end: 20180403
  17. EMLA [Concomitant]
     Active Substance: LIDOCAINE\PRILOCAINE
     Dosage: SMALL QUANTITY
     Route: 050
     Dates: start: 20190122, end: 20190122
  18. SOSEGON [Concomitant]
     Active Substance: PENTAZOCINE
     Dates: start: 20190122, end: 20190122
  19. SOSEGON [Concomitant]
     Active Substance: PENTAZOCINE
     Dates: start: 20190514, end: 20190514
  20. EMLA [Concomitant]
     Active Substance: LIDOCAINE\PRILOCAINE
     Indication: ANAESTHESIA PROCEDURE
     Dosage: SMALL QUANTITY
     Route: 050
     Dates: start: 20180320, end: 20180320
  21. EMLA [Concomitant]
     Active Substance: LIDOCAINE\PRILOCAINE
     Dosage: SMALL QUANTITY
     Route: 050
     Dates: start: 20190514, end: 20190514
  22. ATARAX-P [Concomitant]
     Active Substance: HYDROXYZINE HYDROCHLORIDE
     Dates: start: 20190514, end: 20190514
  23. SPINRAZA [Suspect]
     Active Substance: NUSINERSEN
     Route: 050
     Dates: start: 20190122, end: 20190122
  24. SOSEGON [Concomitant]
     Active Substance: PENTAZOCINE
     Indication: ANAESTHESIA PROCEDURE
     Dates: start: 20180522, end: 20180522
  25. ATARAX-P [Concomitant]
     Active Substance: HYDROXYZINE HYDROCHLORIDE
     Dates: start: 20180911, end: 20180911

REACTIONS (3)
  - Laryngomalacia [Recovered/Resolved with Sequelae]
  - Pneumonia aspiration [Unknown]
  - Throat tightness [Unknown]

NARRATIVE: CASE EVENT DATE: 20180408
